FAERS Safety Report 10548449 (Version 1)
Quarter: 2014Q4

REPORT INFORMATION
  Report Type: Spontaneous
  Country: US (occurrence: None)
  Receive Date: 20141027
  Receipt Date: 20141027
  Transmission Date: 20150529
  Serious: Yes (Hospitalization)
  Sender: FDA-Public Use
  Company Number: None

PATIENT
  Age: 67 Year
  Sex: Male
  Weight: 83.14 kg

DRUGS (2)
  1. ABIRATERONE ACETATE [Suspect]
     Active Substance: ABIRATERONE ACETATE
     Dates: end: 20140919
  2. PREDNISONE. [Suspect]
     Active Substance: PREDNISONE
     Dates: end: 20140919

REACTIONS (2)
  - Prostate cancer [None]
  - Cardiac failure [None]

NARRATIVE: CASE EVENT DATE: 20141014
